FAERS Safety Report 19316689 (Version 1)
Quarter: 2021Q2

REPORT INFORMATION
  Report Type: Spontaneous
  Country: CN (occurrence: CN)
  Receive Date: 20210527
  Receipt Date: 20210527
  Transmission Date: 20210717
  Serious: Yes (Other)
  Sender: FDA-Public Use
  Company Number: CN-ELI_LILLY_AND_COMPANY-CN202105008945

PATIENT
  Sex: Male

DRUGS (2)
  1. CIALIS [Suspect]
     Active Substance: TADALAFIL
     Indication: BENIGN PROSTATIC HYPERPLASIA
  2. CIALIS [Suspect]
     Active Substance: TADALAFIL
     Indication: VENOUS HAEMORRHAGE
     Dosage: 5 MG, DAILY
     Route: 048
     Dates: start: 2020

REACTIONS (3)
  - Venous haemorrhage [Unknown]
  - Benign prostatic hyperplasia [Unknown]
  - Drug ineffective [Unknown]
